FAERS Safety Report 20652892 (Version 1)
Quarter: 2022Q1

REPORT INFORMATION
  Report Type: Spontaneous
  Country: US (occurrence: US)
  Receive Date: 20220330
  Receipt Date: 20220330
  Transmission Date: 20220424
  Serious: Yes (Other)
  Sender: FDA-Public Use
  Company Number: US-MYLANLABS-2022M1023270

PATIENT
  Age: 59 Year
  Sex: Male

DRUGS (3)
  1. DEXAMETHASONE [Suspect]
     Active Substance: DEXAMETHASONE
     Indication: Neurodermatitis
     Dosage: UNK
     Route: 047
  2. NEOMYCIN [Suspect]
     Active Substance: NEOMYCIN
     Indication: Neurodermatitis
     Dosage: UNK
     Route: 061
  3. POLYMYXIN B [Suspect]
     Active Substance: POLYMYXIN B
     Indication: Neurodermatitis
     Dosage: UNK
     Route: 065

REACTIONS (2)
  - Drug ineffective [Unknown]
  - Cataract [Unknown]
